FAERS Safety Report 4660625-5 (Version None)
Quarter: 2005Q2

REPORT INFORMATION
  Report Type: 
  Country: None (occurrence: None)
  Receive Date: 20050425
  Receipt Date: 20050104
  Transmission Date: 20051028
  Serious: No
  Sender: FDA-Public Use
  Company Number: US105894

PATIENT
  Age: 84 Year
  Sex: Female
  Weight: 73 kg

DRUGS (12)
  1. SENSIPAR [Suspect]
     Indication: HYPERPARATHYROIDISM SECONDARY
     Dosage: 30 MG, 1 IN 1 DAYS, PO
     Route: 048
     Dates: start: 20041128, end: 20041215
  2. EPOGEN [Concomitant]
  3. PARICALCITOL [Concomitant]
  4. ISOSORBIDE DINITRATE [Concomitant]
  5. ATENOLOL [Concomitant]
  6. FOLIC ACID [Concomitant]
  7. SEVELAMER HCL [Concomitant]
  8. IRON [Concomitant]
  9. AMLODIPINE BESYLATE [Concomitant]
  10. LISINOPRIL [Concomitant]
  11. DOXAZOSIN MESYLATE [Concomitant]
  12. PRAVASTATIN SODIUM [Concomitant]

REACTIONS (3)
  - HYPERSENSITIVITY [None]
  - PRURITUS [None]
  - RASH [None]
